FAERS Safety Report 4780049-X (Version None)
Quarter: 2005Q3

REPORT INFORMATION
  Report Type: 
  Country: None (occurrence: None)
  Receive Date: 20050927
  Receipt Date: 20050805
  Transmission Date: 20060218
  Serious: Yes (Other)
  Sender: FDA-Public Use
  Company Number: PHEH2005US08780

PATIENT
  Age: 49 Year
  Sex: Male

DRUGS (5)
  1. NEORAL [Suspect]
     Indication: RENAL TRANSPLANT
  2. ZETIA [Concomitant]
     Indication: BLOOD CHOLESTEROL
  3. PREDNISONE [Concomitant]
  4. BETA BLOCKING AGENTS [Concomitant]
  5. CYCLOSPORINE [Suspect]

REACTIONS (1)
  - BLOOD CREATINE PHOSPHOKINASE INCREASED [None]
